FAERS Safety Report 7594671-9 (Version None)
Quarter: 2011Q3

REPORT INFORMATION
  Report Type: 
  Country: None (occurrence: None)
  Receive Date: 20110707
  Receipt Date: 20110622
  Transmission Date: 20111222
  Serious: Yes (Hospitalization, Other)
  Sender: FDA-Public Use
  Company Number: GB-JNJFOC-20060504283

PATIENT
  Sex: Female
  Weight: 69 kg

DRUGS (5)
  1. FOLIC ACID [Concomitant]
     Route: 065
  2. METHOTREXATE [Concomitant]
     Route: 065
  3. LAMICTAL [Concomitant]
     Route: 065
  4. GABAPENTIN [Concomitant]
     Route: 065
  5. REMICADE [Suspect]
     Indication: RHEUMATOID ARTHRITIS
     Route: 042
     Dates: start: 20041027, end: 20060112

REACTIONS (2)
  - ENCEPHALITIS [None]
  - PNEUMONIA [None]
